FAERS Safety Report 6197800-7 (Version None)
Quarter: 2009Q2

REPORT INFORMATION
  Report Type: 
  Country: None (occurrence: None)
  Receive Date: 20090521
  Receipt Date: 20090507
  Transmission Date: 20091009
  Serious: Yes (Other)
  Sender: FDA-Public Use
  Company Number: JP-PFIZER INC-2009210279

PATIENT

DRUGS (1)
  1. GABAPEN [Suspect]
     Indication: CANCER PAIN
     Dosage: UNK
     Route: 048
     Dates: start: 20090426, end: 20090101

REACTIONS (3)
  - CHEST PAIN [None]
  - DYSPNOEA [None]
  - METASTASES TO BONE [None]
